FAERS Safety Report 21033509 (Version 1)
Quarter: 2022Q3

REPORT INFORMATION
  Report Type: Spontaneous
  Country: US (occurrence: US)
  Receive Date: 20220701
  Receipt Date: 20220701
  Transmission Date: 20221027
  Serious: Yes (Hospitalization)
  Sender: FDA-Public Use
  Company Number: US-BOIRON-202200327

PATIENT

DRUGS (1)
  1. OSCILLOCOCCINUM [Suspect]
     Active Substance: CAIRINA MOSCHATA HEART/LIVER AUTOLYSATE
     Indication: Product used for unknown indication

REACTIONS (1)
  - Unevaluable event [Unknown]
